FAERS Safety Report 20367463 (Version 2)
Quarter: 2022Q1

REPORT INFORMATION
  Report Type: Spontaneous
  Country: FR (occurrence: FR)
  Receive Date: 20220124
  Receipt Date: 20220201
  Transmission Date: 20220423
  Serious: Yes (Death)
  Sender: FDA-Public Use
  Company Number: FR-AFSSAPS-AN20214840

PATIENT
  Age: 91 Year
  Sex: Male

DRUGS (2)
  1. MIDAZOLAM [Interacting]
     Active Substance: MIDAZOLAM
     Indication: Palliative sedation
     Dosage: 70 MILLIGRAM, DAILY
     Route: 058
     Dates: start: 20211108, end: 20211112
  2. MORPHINE [Interacting]
     Active Substance: MORPHINE
     Indication: Palliative sedation
     Dosage: 40 MILLIGRAM, DAILY
     Route: 058
     Dates: start: 20211108, end: 20211112

REACTIONS (2)
  - Altered state of consciousness [Fatal]
  - Drug interaction [Fatal]

NARRATIVE: CASE EVENT DATE: 20211108
